FAERS Safety Report 15056727 (Version 1)
Quarter: 2018Q2

REPORT INFORMATION
  Report Type: Spontaneous
  Country: US (occurrence: US)
  Receive Date: 20180604
  Receipt Date: 20180604
  Transmission Date: 20180711
  Serious: Yes (Death)
  Sender: FDA-Public Use
  Company Number: None

PATIENT
  Age: 65 Year
  Sex: Female
  Weight: 65 kg

DRUGS (1)
  1. PARSABIV [Suspect]
     Active Substance: ETELCALCETIDE HYDROCHLORIDE
     Indication: CHRONIC KIDNEY DISEASE-MINERAL AND BONE DISORDER
     Dosage: ?          OTHER FREQUENCY:EVERY DIALYSIS;?
     Route: 017
     Dates: start: 20180510, end: 20180529

REACTIONS (4)
  - Gastrointestinal haemorrhage [None]
  - Colitis [None]
  - Cardio-respiratory arrest [None]
  - Procedural complication [None]

NARRATIVE: CASE EVENT DATE: 20180510
